FAERS Safety Report 16941435 (Version 4)
Quarter: 2020Q1

REPORT INFORMATION
  Report Type: Report from Study
  Country: CN (occurrence: CN)
  Receive Date: 20191021
  Receipt Date: 20200210
  Transmission Date: 20200409
  Serious: Yes (Hospitalization, Other)
  Sender: FDA-Public Use
  Company Number: CN-SHIRE-CN201934871

PATIENT

DRUGS (7)
  1. KANG SI PING [Suspect]
     Active Substance: ANTIHEMOPHILIC FACTOR HUMAN
     Indication: GINGIVAL BLEEDING
     Dosage: 300 GTT DROPS
     Route: 042
     Dates: start: 201701
  2. ADVATE [Suspect]
     Active Substance: ANTIHEMOPHILIC FACTOR, HUMAN RECOMBINANT
     Indication: FACTOR VIII DEFICIENCY
     Dosage: 1000 INTERNATIONAL UNIT, AS REQ^D
     Route: 040
     Dates: start: 2018
  3. ADVATE [Suspect]
     Active Substance: ANTIHEMOPHILIC FACTOR, HUMAN RECOMBINANT
     Indication: GINGIVAL BLEEDING
     Dosage: 5000 GTT DROPS, UNKNOWN
     Route: 042
     Dates: start: 2018
  4. FACTOR VIII [Concomitant]
     Active Substance: ANTIHEMOPHILIC FACTOR HUMAN
     Indication: HAEMARTHROSIS
  5. KANG SI PING [Suspect]
     Active Substance: ANTIHEMOPHILIC FACTOR HUMAN
     Indication: HAEMARTHROSIS
     Dosage: 600 GTT DROPS
     Route: 042
     Dates: start: 201803
  6. KOGENATE FS [Suspect]
     Active Substance: ANTIHEMOPHILIC FACTOR, HUMAN RECOMBINANT
     Indication: GINGIVAL BLEEDING
     Dosage: 1000 INTERNATIONAL UNIT, UNKNOWN
     Route: 042
     Dates: start: 2007
  7. FACTOR VIII [Concomitant]
     Active Substance: ANTIHEMOPHILIC FACTOR HUMAN
     Indication: GINGIVAL BLEEDING

REACTIONS (3)
  - Haemarthrosis [Not Recovered/Not Resolved]
  - Factor VIII inhibition [Unknown]
  - Haemorrhage [Not Recovered/Not Resolved]

NARRATIVE: CASE EVENT DATE: 20191010
